FAERS Safety Report 18203726 (Version 1)
Quarter: 2020Q3

REPORT INFORMATION
  Report Type: Spontaneous
  Country: US (occurrence: US)
  Receive Date: 20200827
  Receipt Date: 20200827
  Transmission Date: 20201103
  Serious: No
  Sender: FDA-Public Use
  Company Number: US-TARO-2020TAR01295

PATIENT
  Sex: Female

DRUGS (1)
  1. LAMISIL [Suspect]
     Active Substance: TERBINAFINE HYDROCHLORIDE
     Indication: FUNGAL SKIN INFECTION
     Dosage: UNK
     Route: 065
     Dates: start: 20200611, end: 20200623

REACTIONS (3)
  - Hypertension [Recovered/Resolved]
  - Dizziness [Recovered/Resolved]
  - Vertigo [Recovered/Resolved]

NARRATIVE: CASE EVENT DATE: 20200611
